FAERS Safety Report 6210312-7 (Version None)
Quarter: 2009Q2

REPORT INFORMATION
  Report Type: 
  Country: None (occurrence: None)
  Receive Date: 20090601
  Receipt Date: 20090521
  Transmission Date: 20091009
  Serious: Yes (Hospitalization)
  Sender: FDA-Public Use
  Company Number: CA-GILEAD-2009-0022125

PATIENT
  Age: 76 Year
  Sex: Male

DRUGS (1)
  1. TRUVADA [Suspect]
     Indication: HEPATITIS B

REACTIONS (3)
  - AGGRESSION [None]
  - DELIRIUM [None]
  - HEPATITIS B [None]
